FAERS Safety Report 6512077-8 (Version None)
Quarter: 2009Q4

REPORT INFORMATION
  Report Type: 
  Country: None (occurrence: None)
  Receive Date: 20091222
  Receipt Date: 20090529
  Transmission Date: 20100525
  Serious: No
  Sender: FDA-Public Use
  Company Number: US-ASTRAZENECA-2009UW13768

PATIENT
  Age: 75 Year
  Sex: Female

DRUGS (9)
  1. CRESTOR [Suspect]
     Indication: ARTERIOSCLEROSIS
     Route: 048
     Dates: start: 20090429, end: 20090501
  2. SPIRIVA [Concomitant]
  3. PRECOSE [Concomitant]
  4. ZETIA [Concomitant]
  5. ASPIRIN [Concomitant]
  6. ATACAND [Concomitant]
  7. XANAX [Concomitant]
  8. DIURETIC [Concomitant]
  9. FISH OIL [Concomitant]

REACTIONS (1)
  - COUGH [None]
